FAERS Safety Report 4293462-4 (Version None)
Quarter: 2004Q1

REPORT INFORMATION
  Report Type: 
  Country: None (occurrence: None)
  Receive Date: 20040126
  Receipt Date: 20031002
  Transmission Date: 20041129
  Serious: No
  Sender: FDA-Public Use
  Company Number: USA030844294

PATIENT
  Age: 78 Year
  Sex: Female
  Weight: 57 kg

DRUGS (4)
  1. FORTEO [Suspect]
     Indication: OSTEOPOROSIS
     Dosage: 20 UG/DAY
     Dates: start: 20030717, end: 20030827
  2. FOSAMAX [Concomitant]
  3. TIMOPTIC [Concomitant]
  4. GLAUCOMA [Concomitant]

REACTIONS (3)
  - FOOD CRAVING [None]
  - INJECTION SITE HAEMORRHAGE [None]
  - URTICARIA [None]
